FAERS Safety Report 6645121-8 (Version None)
Quarter: 2010Q1

REPORT INFORMATION
  Report Type: 
  Country: None (occurrence: None)
  Receive Date: 20100322
  Receipt Date: 20100309
  Transmission Date: 20100710
  Serious: Yes (Other)
  Sender: FDA-Public Use
  Company Number: US-JNJCH-2010002459

PATIENT
  Sex: Female
  Weight: 63.5 kg

DRUGS (1)
  1. NEOSPORIN LIP HEALTH DAILY HYDRATION THERAPY [Suspect]
     Indication: CHAPPED LIPS
     Dosage: TEXT:ONCE
     Route: 061
     Dates: start: 20100115, end: 20100115

REACTIONS (7)
  - DYSPHAGIA [None]
  - DYSPNOEA [None]
  - HYPERSENSITIVITY [None]
  - PHARYNGEAL OEDEMA [None]
  - PRURITUS [None]
  - SKIN DISCOLOURATION [None]
  - SWELLING [None]
